FAERS Safety Report 12589216 (Version 1)
Quarter: 2016Q3

REPORT INFORMATION
  Report Type: Spontaneous
  Country: US (occurrence: US)
  Receive Date: 20160725
  Receipt Date: 20160725
  Transmission Date: 20161109
  Serious: No
  Sender: FDA-Public Use
  Company Number: US-JNJFOC-20160526887

PATIENT
  Age: 79 Year
  Sex: Female
  Weight: 95.26 kg

DRUGS (2)
  1. MOTRIN IB [Suspect]
     Active Substance: IBUPROFEN
     Route: 048
  2. MOTRIN IB [Suspect]
     Active Substance: IBUPROFEN
     Indication: PRODUCT USED FOR UNKNOWN INDICATION
     Route: 048
     Dates: start: 20160526, end: 20160526

REACTIONS (2)
  - Product package associated injury [Recovered/Resolved]
  - Product container issue [Unknown]

NARRATIVE: CASE EVENT DATE: 20160526
